FAERS Safety Report 17420415 (Version 3)
Quarter: 2020Q1

REPORT INFORMATION
  Report Type: Report from Study
  Country: None (occurrence: US)
  Receive Date: 20200214
  Receipt Date: 20200323
  Transmission Date: 20200409
  Serious: Yes (Hospitalization)
  Sender: FDA-Public Use
  Company Number: US-ABBVIE-20K-163-3267501-00

PATIENT
  Sex: Male

DRUGS (11)
  1. VENCLEXTA [Suspect]
     Active Substance: VENETOCLAX
     Indication: HAEMOLYTIC ANAEMIA
     Dosage: TAKE 6 TABLET(S) BY MOUTH (600MG) EVERY DAY
     Route: 048
  2. VENCLEXTA [Suspect]
     Active Substance: VENETOCLAX
     Indication: DEHYDRATION
     Route: 048
     Dates: end: 2020
  3. VENCLEXTA [Suspect]
     Active Substance: VENETOCLAX
     Indication: ERYTHROLEUKAEMIA
  4. VENCLEXTA [Suspect]
     Active Substance: VENETOCLAX
     Indication: CHRONIC KIDNEY DISEASE
  5. VENCLEXTA [Suspect]
     Active Substance: VENETOCLAX
     Indication: REFRACTORY ANAEMIA WITH AN EXCESS OF BLASTS
  6. VENCLEXTA [Suspect]
     Active Substance: VENETOCLAX
     Indication: CORONARY ARTERY THROMBOSIS
  7. VENCLEXTA [Suspect]
     Active Substance: VENETOCLAX
     Indication: ACUTE MYELOID LEUKAEMIA
  8. VENCLEXTA [Suspect]
     Active Substance: VENETOCLAX
     Indication: SLEEP APNOEA SYNDROME
  9. VENCLEXTA [Suspect]
     Active Substance: VENETOCLAX
     Indication: HYPERLIPIDAEMIA
     Route: 048
     Dates: start: 20190222
  10. VENCLEXTA [Suspect]
     Active Substance: VENETOCLAX
     Indication: MYELODYSPLASTIC SYNDROME
  11. VENCLEXTA [Suspect]
     Active Substance: VENETOCLAX
     Indication: ACUTE LEFT VENTRICULAR FAILURE

REACTIONS (3)
  - Haemoglobin decreased [Recovering/Resolving]
  - Myeloid leukaemia [Unknown]
  - Near death experience [Recovering/Resolving]

NARRATIVE: CASE EVENT DATE: 2020
